FAERS Safety Report 5661017-2 (Version None)
Quarter: 2008Q1

REPORT INFORMATION
  Report Type: 
  Country: None (occurrence: None)
  Receive Date: 20080311
  Receipt Date: 20080307
  Transmission Date: 20080703
  Serious: Yes (Death, Hospitalization)
  Sender: FDA-Public Use
  Company Number: BR-BOEHRINGER INGELHEIM GMBH, GERMANY-2008-BP-03473RO

PATIENT
  Age: 49 Year
  Sex: Male

DRUGS (4)
  1. PREDNISONE TAB [Suspect]
     Indication: IDIOPATHIC THROMBOCYTOPENIC PURPURA
  2. CEFEPIME [Concomitant]
     Indication: EVIDENCE BASED TREATMENT
  3. FLUCONAZOLE [Concomitant]
     Indication: EVIDENCE BASED TREATMENT
  4. VANCOMYCIN [Concomitant]
     Indication: EVIDENCE BASED TREATMENT

REACTIONS (3)
  - HERPES VIRUS INFECTION [None]
  - NOCARDIOSIS [None]
  - THYROIDITIS [None]
